FAERS Safety Report 4845404-8 (Version None)
Quarter: 2005Q4

REPORT INFORMATION
  Report Type: 
  Country: None (occurrence: None)
  Receive Date: 20051125
  Receipt Date: 20051121
  Transmission Date: 20060501
  Serious: No
  Sender: FDA-Public Use
  Company Number: 2005S1000857

PATIENT
  Age: 1 Day
  Sex: Male

DRUGS (12)
  1. INOMAX [Suspect]
     Indication: LUNG DISORDER
     Dosage: 5 PPM; INH_GAS; INH; CONT INH
     Route: 055
     Dates: start: 20051104
  2. INOMAX [Suspect]
     Indication: PROPHYLAXIS
     Dosage: 5 PPM; INH_GAS; INH; CONT INH
     Route: 055
     Dates: start: 20051104
  3. PIPERACILLIN [Concomitant]
  4. GENTAMICIN [Concomitant]
  5. ERYTHROMYCIN [Concomitant]
  6. INDOMETHACIN [Concomitant]
  7. DOPAMINE HCL [Concomitant]
  8. IMMUNOGLOBULINS (IMMUNOGLOBULINS) [Concomitant]
  9. INSULIN [Concomitant]
  10. THEOPHYLLINE [Concomitant]
  11. CEFOTAXIME SODIUM [Concomitant]
  12. VANCOMYCIN [Concomitant]

REACTIONS (1)
  - PATENT DUCTUS ARTERIOSUS REPAIR [None]
